FAERS Safety Report 8992204 (Version 2)
Quarter: 2013Q1

REPORT INFORMATION
  Report Type: Report from Study
  Country: US (occurrence: US)
  Receive Date: 20121231
  Receipt Date: 20130225
  Transmission Date: 20140127
  Serious: Yes (Other)
  Sender: FDA-Public Use
  Company Number: US-VERTEX PHARMACEUTICALS INC.-2012-026752

PATIENT
  Sex: Female

DRUGS (3)
  1. VX-950 (TELAPREVIR) [Suspect]
     Indication: HEPATITIS C
     Dosage: 750 MG, TID
     Route: 048
     Dates: start: 20121109, end: 20130214
  2. RIBASPHERE [Suspect]
     Indication: HEPATITIS C
     Dosage: 600 MG QAM, 400 MG QPM
     Route: 048
     Dates: start: 20120116, end: 20130214
  3. PEGASYS [Suspect]
     Indication: HEPATITIS C
     Dosage: 180 ?G, QW
     Route: 058
     Dates: start: 20120116, end: 20130214

REACTIONS (2)
  - Anaemia [Unknown]
  - Depression [Unknown]
